FAERS Safety Report 9916922 (Version 2)
Quarter: 2014Q1

REPORT INFORMATION
  Report Type: Spontaneous
  Country: US (occurrence: US)
  Receive Date: 20140221
  Receipt Date: 20140326
  Transmission Date: 20141002
  Serious: Yes (Congenital Anomaly, Other)
  Sender: FDA-Public Use
  Company Number: US-PFIZER INC-2014049308

PATIENT
  Sex: Male

DRUGS (8)
  1. ZOLOFT [Suspect]
     Dosage: UNK
     Route: 064
     Dates: start: 20040222
  2. SERTRALINE HCL [Suspect]
     Dosage: UNK
     Route: 064
     Dates: start: 20040222
  3. MACROBID [Concomitant]
     Dosage: UNK
     Route: 064
  4. PRENATAL VITAMINS [Concomitant]
     Dosage: UNK
     Route: 064
  5. MELOXICAM [Concomitant]
     Dosage: UNK
     Route: 064
  6. BUPROPION XL [Concomitant]
     Dosage: UNK
     Route: 064
  7. CLARITHROMYCIN [Concomitant]
     Dosage: UNK
     Route: 064
  8. ALBUTEROL INHALER [Concomitant]
     Dosage: UNK
     Route: 064

REACTIONS (7)
  - Maternal exposure during pregnancy [Unknown]
  - Congenital ectopic bladder [Unknown]
  - Epispadias [Unknown]
  - Vesical fistula [Unknown]
  - Chordee [Unknown]
  - Macrocephaly [Unknown]
  - Developmental delay [Unknown]
